FAERS Safety Report 5377050-4 (Version None)
Quarter: 2007Q3

REPORT INFORMATION
  Report Type: 
  Country: None (occurrence: None)
  Receive Date: 20070703
  Receipt Date: 20070628
  Transmission Date: 20080115
  Serious: Yes (Hospitalization)
  Sender: FDA-Public Use
  Company Number: US-AMGEN-US231890

PATIENT
  Sex: Female

DRUGS (1)
  1. ENBREL [Suspect]
     Indication: PSORIASIS
     Route: 058
     Dates: start: 20061120

REACTIONS (3)
  - ALOPECIA [None]
  - BLOOD GLUCOSE FLUCTUATION [None]
  - PHARYNGITIS STREPTOCOCCAL [None]
